FAERS Safety Report 10004599 (Version 1)
Quarter: 2014Q1

REPORT INFORMATION
  Report Type: Spontaneous
  Country: GB (occurrence: GB)
  Receive Date: 20140312
  Receipt Date: 20140312
  Transmission Date: 20141002
  Serious: Yes (Other)
  Sender: FDA-Public Use
  Company Number: GB-MYLANLABS-2014S1004626

PATIENT
  Age: 59 Year
  Sex: Female

DRUGS (4)
  1. ATORVASTATIN [Suspect]
     Dosage: AT NIGHT.
     Route: 048
     Dates: start: 20130816
  2. BENDROFLUMETHIAZIDE [Suspect]
     Dosage: IN THE MORNING.
     Route: 048
     Dates: start: 20120216
  3. LEVOTHYROXINE SODIUM [Suspect]
     Dosage: IN THE MORNING.
     Route: 048
     Dates: start: 20040101
  4. FEMSEVEN /00045401/ [Suspect]
     Route: 062
     Dates: start: 20130816

REACTIONS (1)
  - Dysgeusia [Not Recovered/Not Resolved]
